FAERS Safety Report 14684491 (Version 3)
Quarter: 2018Q2

REPORT INFORMATION
  Report Type: Spontaneous
  Country: US (occurrence: US)
  Receive Date: 20180327
  Receipt Date: 20180529
  Transmission Date: 20180711
  Serious: Yes (Death, Hospitalization)
  Sender: FDA-Public Use
  Company Number: US-JNJFOC-20180333596

PATIENT
  Age: 87 Year
  Sex: Male
  Weight: 73.03 kg

DRUGS (12)
  1. FLOMAX [Concomitant]
     Active Substance: TAMSULOSIN HYDROCHLORIDE
     Dosage: START DATE 10-FEB-UNSPECIFIED YEAR
     Route: 065
     Dates: end: 20180225
  2. ZYTIGA [Suspect]
     Active Substance: ABIRATERONE ACETATE
     Indication: PROSTATE CANCER
     Dosage: ON EMPTY STOMACH
     Route: 048
     Dates: start: 20170506, end: 20180305
  3. OXYBUTYNIN. [Concomitant]
     Active Substance: OXYBUTYNIN CHLORIDE
     Indication: HYPERTONIC BLADDER
     Dosage: START DATE 10-FEB-UNSPECIFIED YEAR
     Route: 065
     Dates: end: 20180225
  4. ZANTAC [Concomitant]
     Active Substance: RANITIDINE HYDROCHLORIDE
     Indication: GASTROOESOPHAGEAL REFLUX DISEASE
     Route: 065
     Dates: end: 20180225
  5. METAMUCIL [Concomitant]
     Active Substance: PLANTAGO SEED
     Indication: CONSTIPATION
     Dosage: START DATE 10-FEB-UNSPECIFIED YEAR
     Route: 065
     Dates: end: 20180225
  6. PREDNISONE. [Concomitant]
     Active Substance: PREDNISONE
     Indication: PROSTATE CANCER
     Dosage: START DATE 10-FEB-UNSPECIFIED YEAR
     Route: 065
     Dates: end: 20180225
  7. LASIX [Concomitant]
     Active Substance: FUROSEMIDE
     Indication: FLUID RETENTION
     Dosage: START DATE: 10-FEB-UNSPECIFIED YEAR
     Route: 065
     Dates: end: 20180225
  8. PROSCAR [Concomitant]
     Active Substance: FINASTERIDE
     Indication: PROSTATE CANCER
     Dosage: START DATE 10-FEB-UNSPECIFIED YEAR
     Route: 065
     Dates: end: 20180225
  9. KLOR-CON [Concomitant]
     Active Substance: POTASSIUM CHLORIDE
     Route: 065
  10. JANUVIA [Concomitant]
     Active Substance: SITAGLIPTIN PHOSPHATE
     Indication: DIABETES MELLITUS
     Route: 065
     Dates: end: 20180225
  11. ULTRAM [Concomitant]
     Active Substance: TRAMADOL HYDROCHLORIDE
     Indication: PAIN
     Dosage: START DATE: 10-FEB-UNSPECIFIED YEAR
     Route: 065
     Dates: end: 20180225
  12. JANUVIA [Concomitant]
     Active Substance: SITAGLIPTIN PHOSPHATE
     Indication: DIABETES MELLITUS
     Dosage: START DATE 10-FEB-UNSPECIFIED YEAR
     Route: 065
     Dates: end: 20180225

REACTIONS (4)
  - Vomiting [Not Recovered/Not Resolved]
  - Urinary tract infection [Fatal]
  - Blood potassium decreased [Unknown]
  - Sepsis [Fatal]

NARRATIVE: CASE EVENT DATE: 201802
